FAERS Safety Report 15456749 (Version 1)
Quarter: 2018Q4

REPORT INFORMATION
  Report Type: Spontaneous
  Country: US (occurrence: US)
  Receive Date: 20181002
  Receipt Date: 20181002
  Transmission Date: 20190204
  Serious: No
  Sender: FDA-Public Use
  Company Number: US-BAUSCH-BL-2018-025591

PATIENT
  Age: 77 Year
  Sex: Female

DRUGS (5)
  1. PROLENSA [Suspect]
     Active Substance: BROMFENAC SODIUM
     Indication: EYE INFLAMMATION
     Dosage: IN LEFT EYE
     Route: 047
     Dates: start: 20180829, end: 20180831
  2. DUREZOL [Concomitant]
     Active Substance: DIFLUPREDNATE
     Indication: EYE INFLAMMATION
     Dosage: IN LEFT EYE
     Route: 047
     Dates: start: 20180831
  3. DUREZOL [Concomitant]
     Active Substance: DIFLUPREDNATE
     Dosage: DOSE INCREASED (IN LEFT EYE)
     Route: 047
     Dates: start: 201809
  4. ESZOPICLONE. [Concomitant]
     Active Substance: ESZOPICLONE
     Indication: PRODUCT USED FOR UNKNOWN INDICATION
     Route: 048
  5. PROLENSA [Suspect]
     Active Substance: BROMFENAC SODIUM
     Dosage: DOSE REDUCE (IN LEFT EYE)
     Route: 047
     Dates: start: 20180831, end: 20180907

REACTIONS (1)
  - Vision blurred [Not Recovered/Not Resolved]

NARRATIVE: CASE EVENT DATE: 201808
